FAERS Safety Report 9768037 (Version 1)
Quarter: 2013Q4

REPORT INFORMATION
  Report Type: Spontaneous
  Country: BE (occurrence: BE)
  Receive Date: 20131217
  Receipt Date: 20131217
  Transmission Date: 20140711
  Serious: Yes (Other)
  Sender: FDA-Public Use
  Company Number: BE-PFIZER INC-2013358103

PATIENT
  Sex: 0

DRUGS (4)
  1. ALDACTONE [Suspect]
     Route: 048
  2. BISOPROLOL [Concomitant]
     Route: 048
  3. DAFALGAN [Concomitant]
     Route: 048
  4. RIOPAN [Concomitant]
     Route: 048

REACTIONS (1)
  - Angioedema [Unknown]
